FAERS Safety Report 21287036 (Version 1)
Quarter: 2022Q3

REPORT INFORMATION
  Report Type: Spontaneous
  Country: US (occurrence: None)
  Receive Date: 20220902
  Receipt Date: 20220902
  Transmission Date: 20221026
  Serious: Yes (Disabling)
  Sender: FDA-Public Use
  Company Number: None

PATIENT
  Age: 71 Year
  Sex: Female
  Weight: 56.7 kg

DRUGS (7)
  1. PROLIA [Suspect]
     Active Substance: DENOSUMAB
     Indication: Osteopenia
     Dosage: OTHER FREQUENCY : ONCE EVERY 6 MONTH;?
     Dates: start: 20210513, end: 20210513
  2. PROLIA [Suspect]
     Active Substance: DENOSUMAB
     Indication: Osteoporosis
  3. ACTONEL [Suspect]
     Active Substance: RISEDRONATE SODIUM
  4. METOPROLOL [Concomitant]
     Active Substance: METOPROLOL
  5. CALCIUM [Concomitant]
     Active Substance: CALCIUM
  6. VITAMIN D [Concomitant]
     Active Substance: VITAMIN D NOS
  7. PROBIOTICS NOS [Concomitant]
     Active Substance: PROBIOTICS NOS

REACTIONS (10)
  - Muscle twitching [None]
  - Asthenia [None]
  - Bedridden [None]
  - Completed suicide [None]
  - Psychomotor hyperactivity [None]
  - Contusion [None]
  - Blood pressure fluctuation [None]
  - Toothache [None]
  - Pain in jaw [None]
  - Headache [None]

NARRATIVE: CASE EVENT DATE: 20210513
